FAERS Safety Report 11156735 (Version 1)
Quarter: 2015Q2

REPORT INFORMATION
  Report Type: Spontaneous
  Country: IL (occurrence: IL)
  Receive Date: 20150602
  Receipt Date: 20150602
  Transmission Date: 20150821
  Serious: Yes (Death, Hospitalization, Other)
  Sender: FDA-Public Use
  Company Number: IL-GLAXOSMITHKLINE-IL2015GSK072274

PATIENT
  Age: 61 Year
  Sex: Female

DRUGS (1)
  1. VOTRIENT [Suspect]
     Active Substance: PAZOPANIB HYDROCHLORIDE
     Indication: SARCOMA UTERUS
     Dosage: 800 MG, UNK
     Route: 048
     Dates: start: 201410, end: 201503

REACTIONS (7)
  - Hepatic enzyme increased [Unknown]
  - Disease progression [Fatal]
  - Neutropenia [Unknown]
  - Urinary tract infection [Unknown]
  - Pyrexia [Unknown]
  - Vomiting [Unknown]
  - Weight decreased [Unknown]

NARRATIVE: CASE EVENT DATE: 201503
